FAERS Safety Report 12685013 (Version 2)
Quarter: 2016Q4

REPORT INFORMATION
  Report Type: Spontaneous
  Country: JP (occurrence: JP)
  Receive Date: 20160825
  Receipt Date: 20161018
  Transmission Date: 20170207
  Serious: Yes (Other)
  Sender: FDA-Public Use
  Company Number: PHJP2016JP023497

PATIENT
  Age: 79 Year
  Sex: Female

DRUGS (5)
  1. CYTOTEC [Concomitant]
     Active Substance: MISOPROSTOL
     Indication: PRODUCT USED FOR UNKNOWN INDICATION
     Dosage: 100 MG, BID
     Route: 048
     Dates: start: 20141004
  2. VOLTAREN SUP [Suspect]
     Active Substance: DICLOFENAC SODIUM
     Indication: SPINAL COMPRESSION FRACTURE
     Dosage: 50 MG, UNK
     Route: 054
     Dates: start: 20140927, end: 201410
  3. CALONAL [Concomitant]
     Active Substance: ACETAMINOPHEN
     Indication: PRODUCT USED FOR UNKNOWN INDICATION
     Dosage: 1200 MG, UNK
     Route: 048
     Dates: start: 20140917
  4. VOLTAREN [Suspect]
     Active Substance: DICLOFENAC SODIUM
     Indication: SPINAL COMPRESSION FRACTURE
     Dosage: UNK, ADEQUATE AMOUNT
     Route: 061
     Dates: start: 20140927
  5. MUCOSTA [Concomitant]
     Active Substance: REBAMIPIDE
     Indication: PRODUCT USED FOR UNKNOWN INDICATION
     Dosage: 300 MG, UNK
     Route: 048
     Dates: start: 20140917

REACTIONS (4)
  - Duodenal ulcer perforation [Unknown]
  - Peritonitis [Unknown]
  - Gastric ulcer haemorrhage [Unknown]
  - Duodenal ulcer haemorrhage [Unknown]
